FAERS Safety Report 13771654 (Version 1)
Quarter: 2017Q3

REPORT INFORMATION
  Report Type: Spontaneous
  Country: US (occurrence: US)
  Receive Date: 20170720
  Receipt Date: 20170720
  Transmission Date: 20171127
  Serious: No
  Sender: FDA-Public Use
  Company Number: US-PFIZER INC-2017311122

PATIENT
  Sex: Female
  Weight: 71 kg

DRUGS (3)
  1. HYDROCODONE [Suspect]
     Active Substance: HYDROCODONE
     Indication: PAIN
  2. DIAZEPAM. [Suspect]
     Active Substance: DIAZEPAM
     Indication: PAIN
  3. LEVOTHYROXINE. [Concomitant]
     Active Substance: LEVOTHYROXINE
     Indication: THYROID DISORDER
     Dosage: 75 UG, 1X/DAY

REACTIONS (1)
  - Drug ineffective [Unknown]
